FAERS Safety Report 21819874 (Version 1)
Quarter: 2023Q1

REPORT INFORMATION
  Report Type: Spontaneous
  Country: None (occurrence: GB)
  Receive Date: 20230104
  Receipt Date: 20230104
  Transmission Date: 20230418
  Serious: Yes (Other)
  Sender: FDA-Public Use
  Company Number: GB-Ascend Therapeutics US, LLC-2136426

PATIENT
  Age: 56 Year
  Sex: Female
  Weight: 56 kg

DRUGS (6)
  1. ESTROGEL [Suspect]
     Active Substance: ESTRADIOL
     Indication: Menopausal symptoms
     Route: 065
     Dates: start: 202003, end: 2021
  2. ESTROGEL [Suspect]
     Active Substance: ESTRADIOL
  3. ESTROGEL [Suspect]
     Active Substance: ESTRADIOL
     Route: 065
     Dates: start: 202003, end: 2021
  4. ESTROGEL [Suspect]
     Active Substance: ESTRADIOL
     Route: 065
     Dates: start: 2021
  5. TESTOSTERONE [Suspect]
     Active Substance: TESTOSTERONE
     Route: 065
     Dates: start: 20220624, end: 20221127
  6. TESTOSTERONE [Suspect]
     Active Substance: TESTOSTERONE
     Route: 065
     Dates: start: 2022

REACTIONS (13)
  - Night sweats [Recovered/Resolved]
  - Nocturia [Recovering/Resolving]
  - Accidental overdose [None]
  - Joint swelling [Recovering/Resolving]
  - Skin disorder [Unknown]
  - Memory impairment [Unknown]
  - Aggression [Recovering/Resolving]
  - Arthralgia [Recovering/Resolving]
  - Insomnia [Recovering/Resolving]
  - Off label use [None]
  - Drug titration error [None]
  - Incorrect dose administered [None]
  - Product dispensing error [None]

NARRATIVE: CASE EVENT DATE: 20220101
